FAERS Safety Report 20506780 (Version 1)
Quarter: 2022Q1

REPORT INFORMATION
  Report Type: Spontaneous
  Country: US (occurrence: None)
  Receive Date: 20220222
  Receipt Date: 20220222
  Transmission Date: 20220423
  Serious: Yes (Other)
  Sender: FDA-Public Use
  Company Number: None

PATIENT
  Age: 43 Year
  Sex: Female
  Weight: 68.49 kg

DRUGS (1)
  1. EMGALITY [Suspect]
     Active Substance: GALCANEZUMAB-GNLM
     Indication: Migraine
     Dosage: FREQUENCY : MONTHLY;?
     Route: 058
     Dates: start: 20190820, end: 20200420

REACTIONS (5)
  - Injection site reaction [None]
  - Injection site erythema [None]
  - Injection site pruritus [None]
  - Injection site rash [None]
  - Injection site haematoma [None]

NARRATIVE: CASE EVENT DATE: 20200406
